FAERS Safety Report 4576564-4 (Version None)
Quarter: 2005Q1

REPORT INFORMATION
  Report Type: 
  Country: None (occurrence: None)
  Receive Date: 20050119
  Receipt Date: 20031208
  Transmission Date: 20050727
  Serious: Yes (Other)
  Sender: FDA-Public Use
  Company Number: A03200302543

PATIENT
  Age: 68 Year
  Sex: Male
  Weight: 123.8 kg

DRUGS (12)
  1. PLAVIX [Suspect]
     Dosage: 75 MG QD - ORAL
     Route: 048
  2. ESTRAMUSTINE - TABLET - UNIT DOSE : UNKNOWN [Suspect]
     Indication: PROSTATE CANCER
     Dosage: 4200 MG Q3W - ORAL
     Route: 048
     Dates: start: 20030918, end: 20030918
  3. VERAPAMIL HYDROCHLORIDE [Concomitant]
  4. GLIPIZIDE [Concomitant]
  5. IXABEPILONE - SOLUTION - UNIT DOSE : UNKNOWN [Suspect]
     Indication: PROSTATE CANCER
     Dosage: MG Q3W - INTRAVENOUS NOS
     Route: 042
     Dates: start: 20030922, end: 20030922
  6. COUMADIN [Suspect]
     Dates: end: 20031001
  7. ASPIRIN [Suspect]
     Dates: end: 20031001
  8. ALEVE [Suspect]
  9. FUROSEMIDE [Concomitant]
  10. ATORVASTATIN [Concomitant]
  11. LISINOPRIL [Concomitant]
  12. OXYCODONE HCL [Concomitant]

REACTIONS (11)
  - ANAEMIA [None]
  - DIARRHOEA [None]
  - DYSPNOEA EXERTIONAL [None]
  - EPISTAXIS [None]
  - FAECAL OCCULT BLOOD POSITIVE [None]
  - FATIGUE [None]
  - NAUSEA [None]
  - PLATELET COUNT DECREASED [None]
  - PROTHROMBIN TIME PROLONGED [None]
  - VOMITING [None]
  - WHITE BLOOD CELL COUNT DECREASED [None]
